FAERS Safety Report 9319871 (Version 1)
Quarter: 2013Q2

REPORT INFORMATION
  Report Type: Spontaneous
  Country: CA (occurrence: CA)
  Receive Date: 20130530
  Receipt Date: 20130530
  Transmission Date: 20140414
  Serious: Yes (Other)
  Sender: FDA-Public Use
  Company Number: CA-JNJFOC-20130519135

PATIENT
  Age: 54 Year
  Sex: Male
  Weight: 82 kg

DRUGS (5)
  1. PREZISTA [Suspect]
     Indication: PRODUCT USED FOR UNKNOWN INDICATION
     Route: 048
  2. DAPSONE [Concomitant]
     Route: 065
  3. IMODIUM [Concomitant]
     Route: 065
  4. SYMBICORT TURBUHALER [Concomitant]
     Route: 065
  5. TERBINAFINE [Concomitant]
     Route: 065

REACTIONS (5)
  - Eye pruritus [Recovered/Resolved]
  - Eyelid oedema [Recovered/Resolved]
  - Lip swelling [Recovered/Resolved]
  - Rash maculo-papular [Recovered/Resolved]
  - Urticaria [Recovered/Resolved]
